FAERS Safety Report 9414881 (Version 2)
Quarter: 2013Q3

REPORT INFORMATION
  Report Type: Spontaneous
  Country: US (occurrence: US)
  Receive Date: 20130723
  Receipt Date: 20130909
  Transmission Date: 20140515
  Serious: No
  Sender: FDA-Public Use
  Company Number: US-PFIZER INC-2013211710

PATIENT
  Age: 34 Year
  Sex: Female
  Weight: 81.6 kg

DRUGS (1)
  1. DEPO-PROVERA [Suspect]
     Indication: FEMALE STERILISATION
     Dosage: 150 MG, SINGLE
     Dates: start: 201303

REACTIONS (1)
  - Menorrhagia [Not Recovered/Not Resolved]
